FAERS Safety Report 6387747-5 (Version None)
Quarter: 2009Q4

REPORT INFORMATION
  Report Type: 
  Country: None (occurrence: None)
  Receive Date: 20091005
  Receipt Date: 20090921
  Transmission Date: 20100525
  Serious: Yes (Other)
  Sender: FDA-Public Use
  Company Number: PHHY2009BR41076

PATIENT
  Sex: Female
  Weight: 80 kg

DRUGS (13)
  1. EXFORGE [Suspect]
     Indication: HYPERTENSION
     Dosage: UNK
  2. DIOVAN HCT [Suspect]
     Dosage: UNK
     Dates: end: 20090908
  3. DIOVAN AMLO FIX [Suspect]
     Dosage: 320/5MG
     Dates: start: 20090908
  4. ZELMAC [Suspect]
     Dosage: 6 MG, BID
  5. AMITRIPTYLINE [Concomitant]
     Indication: DEPRESSION
     Dosage: 25 MG, BID
     Route: 048
     Dates: start: 20060101
  6. TOFRANIL [Concomitant]
     Indication: DEPRESSION
     Dosage: 75 MG, QD
     Route: 048
     Dates: start: 20060101
  7. PURAN T4 [Concomitant]
     Indication: HYPOTHYROIDISM
     Dosage: 275 UG, QD
     Route: 048
  8. ATENOLOL [Concomitant]
     Dosage: 50 MG, BID
     Route: 048
  9. METHYLDOPA [Concomitant]
     Dosage: 500 MG, TID
     Route: 048
  10. SIMVASTATIN [Concomitant]
     Indication: BLOOD CHOLESTEROL
     Dosage: 20 MG, QD
     Route: 048
     Dates: start: 20040101
  11. SERTRALINE HCL [Concomitant]
     Indication: DEPRESSION
     Dosage: 50 MG, QID
     Route: 048
  12. RISPERIDONE [Concomitant]
     Indication: DEPRESSION
     Dosage: 1 MG, QD
     Route: 048
  13. RIVOTRIL [Concomitant]
     Indication: DEPRESSION
     Dosage: 2 MG, QD

REACTIONS (9)
  - ABDOMINAL PAIN [None]
  - DIVERTICULUM [None]
  - GASTROINTESTINAL MOTILITY DISORDER [None]
  - HAEMATOCHEZIA [None]
  - HEADACHE [None]
  - HEPATIC STEATOSIS [None]
  - HEPATITIS A [None]
  - HEPATITIS A ANTIBODY POSITIVE [None]
  - PAINFUL DEFAECATION [None]
